FAERS Safety Report 25444405 (Version 4)
Quarter: 2025Q3

REPORT INFORMATION
  Report Type: Report from Study
  Country: EU (occurrence: EU)
  Receive Date: 20250617
  Receipt Date: 20250815
  Transmission Date: 20251020
  Serious: Yes (Death, Life-Threatening, Hospitalization, Other)
  Sender: TAKEDA
  Company Number: EU-TAKEDA-2025TUS052088

PATIENT
  Sex: Male
  Weight: 78 kg

DRUGS (4)
  1. FRUQUINTINIB [Suspect]
     Active Substance: FRUQUINTINIB
     Indication: Colorectal cancer metastatic
     Dates: start: 20250326, end: 20250408
  2. AMLODIPINE [Concomitant]
     Active Substance: AMLODIPINE BESYLATE
     Indication: Hypertension
     Dosage: 5 MILLIGRAM, QD
  3. BISOPROLOL [Concomitant]
     Active Substance: BISOPROLOL
     Indication: Hypertension
     Dosage: 2.5 MILLIGRAM, QD
  4. RIVAROXABAN [Concomitant]
     Active Substance: RIVAROXABAN
     Indication: Arrhythmia
     Dosage: 20 MILLIGRAM, QD

REACTIONS (3)
  - Colorectal cancer metastatic [Fatal]
  - Acute abdomen [Recovering/Resolving]
  - Diarrhoea [Recovered/Resolved]

NARRATIVE: CASE EVENT DATE: 20250409
